FAERS Safety Report 19939906 (Version 4)
Quarter: 2022Q1

REPORT INFORMATION
  Report Type: Report from Study
  Country: US (occurrence: US)
  Receive Date: 20211012
  Receipt Date: 20220204
  Transmission Date: 20220423
  Serious: Yes (Life-Threatening, Hospitalization)
  Sender: FDA-Public Use
  Company Number: US-APELLIS-00977

PATIENT
  Age: 70 Year
  Sex: Male
  Weight: 86.183 kg

DRUGS (4)
  1. EMPAVELI [Suspect]
     Active Substance: PEGCETACOPLAN
     Indication: Paroxysmal nocturnal haemoglobinuria
     Route: 058
     Dates: start: 20210909
  2. EMPAVELI [Suspect]
     Active Substance: PEGCETACOPLAN
     Indication: Paroxysmal nocturnal haemoglobinuria
     Route: 058
     Dates: start: 20210909, end: 20220115
  3. 55970 (GLOBALC3Sep21): Tylenol (paracetamol) [Concomitant]
     Indication: Product used for unknown indication
  4. 4374102 (GLOBALC3Sep21): Ultomiris [Concomitant]
     Indication: Product used for unknown indication

REACTIONS (10)
  - Cardiac failure congestive [Unknown]
  - Platelet count decreased [Unknown]
  - Haemoglobin decreased [Unknown]
  - Retinal haemorrhage [Unknown]
  - Vision blurred [Unknown]
  - Vitreous floaters [Unknown]
  - Gastric ulcer haemorrhage [Unknown]
  - Large intestine polyp [Unknown]
  - Pleural effusion [Unknown]
  - Rectal ulcer [Unknown]

NARRATIVE: CASE EVENT DATE: 20210928
